FAERS Safety Report 18963703 (Version 1)
Quarter: 2021Q1

REPORT INFORMATION
  Report Type: Spontaneous
  Country: US (occurrence: US)
  Receive Date: 20210303
  Receipt Date: 20210303
  Transmission Date: 20210420
  Serious: No
  Sender: FDA-Public Use
  Company Number: US-AMGEN-USASP2021031291

PATIENT

DRUGS (1)
  1. NEUPOGEN [Suspect]
     Active Substance: FILGRASTIM
     Indication: HAEMATOPOIETIC STEM CELL MOBILISATION
     Dosage: 10 MICROGRAM/KILOGRAM, QD
     Route: 058

REACTIONS (8)
  - Abdominal discomfort [Unknown]
  - Paraesthesia [Unknown]
  - Influenza [Unknown]
  - Injection site pain [Unknown]
  - Headache [Unknown]
  - Flushing [Unknown]
  - Therapeutic product effect incomplete [Unknown]
  - Bone pain [Unknown]
